FAERS Safety Report 18511736 (Version 3)
Quarter: 2020Q4

REPORT INFORMATION
  Report Type: Spontaneous
  Country: AU (occurrence: AU)
  Receive Date: 20201117
  Receipt Date: 20201222
  Transmission Date: 20210114
  Serious: Yes (Other)
  Sender: FDA-Public Use
  Company Number: AU-PFIZER INC-2020443416

PATIENT
  Age: 28 Year
  Sex: Male
  Weight: 67 kg

DRUGS (4)
  1. ROCURONIUM BROMIDE. [Suspect]
     Active Substance: ROCURONIUM BROMIDE
     Indication: ENDOTRACHEAL INTUBATION
     Dosage: 50 MG (ONE VIAL)
     Route: 042
     Dates: start: 20201101, end: 20201101
  2. FENTANYL. [Concomitant]
     Active Substance: FENTANYL
     Dosage: 100 MG
     Route: 042
  3. ROCURONIUM BROMIDE. [Suspect]
     Active Substance: ROCURONIUM BROMIDE
     Dosage: 50 MG (ONE VIAL)
     Route: 042
     Dates: start: 20201101, end: 20201101
  4. KETAMINE [Concomitant]
     Active Substance: KETAMINE
     Dosage: 100 MG
     Route: 042

REACTIONS (2)
  - Laryngospasm [Recovered/Resolved]
  - Drug ineffective [Recovered/Resolved]

NARRATIVE: CASE EVENT DATE: 20201101
